FAERS Safety Report 6738722-X (Version None)
Quarter: 2010Q2

REPORT INFORMATION
  Report Type: 
  Country: None (occurrence: None)
  Receive Date: 20100524
  Receipt Date: 20100512
  Transmission Date: 20101027
  Serious: Yes (Death, Hospitalization, Other)
  Sender: FDA-Public Use
  Company Number: US-PFIZER INC-2010060614

PATIENT
  Sex: Female

DRUGS (1)
  1. ZYVOX [Suspect]
     Dosage: UNK

REACTIONS (8)
  - DEATH [None]
  - ENTEROCOCCAL INFECTION [None]
  - FEELING ABNORMAL [None]
  - HYPERTENSION [None]
  - PURULENT DISCHARGE [None]
  - PYREXIA [None]
  - SEPTIC SHOCK [None]
  - SYSTEMIC LUPUS ERYTHEMATOSUS [None]
